FAERS Safety Report 22294712 (Version 1)
Quarter: 2023Q2

REPORT INFORMATION
  Report Type: Report from Study
  Country: US (occurrence: US)
  Receive Date: 20230508
  Receipt Date: 20230508
  Transmission Date: 20230721
  Serious: No
  Sender: FDA-Public Use
  Company Number: US-002147023-NVSC2023US102987

PATIENT
  Age: 63 Year
  Sex: Female

DRUGS (1)
  1. ENTRESTO [Suspect]
     Active Substance: SACUBITRIL\VALSARTAN
     Indication: Cardiac failure
     Dosage: 1 DOSAGE FORM, BID (97.103 MG)
     Route: 048
     Dates: start: 2015

REACTIONS (3)
  - Chest pain [Recovered/Resolved]
  - Pain [Unknown]
  - Breast pain [Unknown]

NARRATIVE: CASE EVENT DATE: 20220801
